FAERS Safety Report 6904146-5 (Version None)
Quarter: 2010Q3

REPORT INFORMATION
  Report Type: 
  Country: None (occurrence: None)
  Receive Date: 20100804
  Receipt Date: 20090324
  Transmission Date: 20110219
  Serious: Yes (Hospitalization, Other)
  Sender: FDA-Public Use
  Company Number: US-PFIZER INC-2008098478

PATIENT
  Sex: Male

DRUGS (5)
  1. LYRICA [Suspect]
     Indication: PAIN
     Dosage: 150 MG, 3X/DAY
     Route: 048
     Dates: start: 20080401
  2. LYRICA [Suspect]
     Indication: DRUG WITHDRAWAL SYNDROME
  3. PERCOCET [Concomitant]
     Dosage: 10/325 MG
     Route: 048
     Dates: end: 20081101
  4. SOMA [Concomitant]
     Dosage: 350 MG, 4X/DAY
  5. VALIUM [Concomitant]

REACTIONS (5)
  - OVERDOSE [None]
  - RHINORRHOEA [None]
  - ROAD TRAFFIC ACCIDENT [None]
  - WEIGHT INCREASED [None]
  - WITHDRAWAL SYNDROME [None]
